FAERS Safety Report 6297143-7 (Version None)
Quarter: 2009Q3

REPORT INFORMATION
  Report Type: 
  Country: None (occurrence: None)
  Receive Date: 20090804
  Receipt Date: 20090731
  Transmission Date: 20100115
  Serious: Yes (Hospitalization)
  Sender: FDA-Public Use
  Company Number: US-GILEAD-2009-0023138

PATIENT
  Sex: Female
  Weight: 79.904 kg

DRUGS (9)
  1. LETAIRIS [Suspect]
     Indication: PULMONARY ARTERIAL HYPERTENSION
     Route: 048
     Dates: start: 20080814
  2. PREDNISONE TAB [Concomitant]
  3. DYAZIDE [Concomitant]
  4. PLAQUENIL [Concomitant]
  5. AMLODIPINE [Concomitant]
  6. PROCARDIA [Concomitant]
  7. ASPIRIN [Concomitant]
  8. ACTOS [Concomitant]
  9. BENICAR HCT [Concomitant]

REACTIONS (3)
  - CARDIAC FAILURE CONGESTIVE [None]
  - FLUID RETENTION [None]
  - RENAL FAILURE ACUTE [None]
